FAERS Safety Report 21659827 (Version 3)
Quarter: 2023Q1

REPORT INFORMATION
  Report Type: Spontaneous
  Country: US (occurrence: US)
  Receive Date: 20221130
  Receipt Date: 20230207
  Transmission Date: 20230418
  Serious: Yes (Other)
  Sender: FDA-Public Use
  Company Number: US-GSK-US2022177448

PATIENT

DRUGS (1)
  1. NUCALA [Suspect]
     Active Substance: MEPOLIZUMAB
     Indication: Asthma
     Dosage: 300 MG, Z, 28 DAYS

REACTIONS (3)
  - Pulmonary congestion [Recovered/Resolved]
  - Condition aggravated [Unknown]
  - Product dose omission issue [Unknown]
